APPROVED DRUG PRODUCT: NUCYNTA
Active Ingredient: TAPENTADOL HYDROCHLORIDE
Strength: EQ 75MG BASE
Dosage Form/Route: TABLET;ORAL
Application: N022304 | Product #002 | TE Code: AB
Applicant: COLLEGIUM PHARMACEUTICAL INC
Approved: Nov 20, 2008 | RLD: Yes | RS: No | Type: RX

EXCLUSIVITY:
Code: PED | Date: Jan 3, 2027
Code: NPP | Date: Jul 3, 2026